FAERS Safety Report 22248313 (Version 1)
Quarter: 2023Q2

REPORT INFORMATION
  Report Type: Spontaneous
  Country: US (occurrence: US)
  Receive Date: 20230425
  Receipt Date: 20230425
  Transmission Date: 20230722
  Serious: Yes (Hospitalization)
  Sender: FDA-Public Use
  Company Number: US-STRIDES ARCOLAB LIMITED-2023SP003175

PATIENT
  Age: 18 Year
  Sex: Male

DRUGS (8)
  1. OLANZAPINE [Suspect]
     Active Substance: OLANZAPINE
     Indication: Phelan-McDermid syndrome
     Dosage: UNK (INITIAL DOSE)
     Route: 065
  2. OLANZAPINE [Suspect]
     Active Substance: OLANZAPINE
     Dosage: 30 MILLIGRAM PER DAY
     Route: 065
  3. LORAZEPAM [Suspect]
     Active Substance: LORAZEPAM
     Indication: Phelan-McDermid syndrome
     Dosage: 24 MILLIGRAM PER DAY
     Route: 065
  4. MEMANTINE [Suspect]
     Active Substance: MEMANTINE
     Indication: Phelan-McDermid syndrome
     Dosage: 20 MILLIGRAM PER DAY
     Route: 065
  5. VALPROATE [Suspect]
     Active Substance: VALPROIC ACID
     Indication: Phelan-McDermid syndrome
     Dosage: DOSAGE: UPTO 3G DAILY
     Route: 065
  6. CLONIDINE [Concomitant]
     Active Substance: CLONIDINE
     Indication: Phelan-McDermid syndrome
     Dosage: UNK
     Route: 065
  7. PROPOFOL [Concomitant]
     Active Substance: PROPOFOL
     Indication: Phelan-McDermid syndrome
     Dosage: UNK
     Route: 065
  8. DEXMEDETOMIDINE [Concomitant]
     Active Substance: DEXMEDETOMIDINE
     Indication: Phelan-McDermid syndrome
     Dosage: UNK
     Route: 065

REACTIONS (2)
  - Treatment failure [Unknown]
  - Off label use [Unknown]
